FAERS Safety Report 13115716 (Version 1)
Quarter: 2017Q1

REPORT INFORMATION
  Report Type: Spontaneous
  Country: BE (occurrence: BE)
  Receive Date: 20170114
  Receipt Date: 20170114
  Transmission Date: 20170428
  Serious: Yes (Disabling)
  Sender: FDA-Public Use
  Company Number: BE-ABBVIE-17P-013-1840434-00

PATIENT
  Sex: Male

DRUGS (1)
  1. DEPAKINE [Suspect]
     Active Substance: VALPROATE SODIUM
     Indication: PRODUCT USED FOR UNKNOWN INDICATION
     Route: 064

REACTIONS (3)
  - Emotional disorder [Not Recovered/Not Resolved]
  - Disability [Not Recovered/Not Resolved]
  - Exposure during pregnancy [Unknown]
